FAERS Safety Report 4611969-4 (Version None)
Quarter: 2005Q2

REPORT INFORMATION
  Report Type: 
  Country: None (occurrence: None)
  Receive Date: 20050308
  Receipt Date: 20041221
  Transmission Date: 20051028
  Serious: Yes (Other)
  Sender: FDA-Public Use
  Company Number: 2004UW25885

PATIENT
  Age: 49 Year
  Sex: Female
  Weight: 74.842 kg

DRUGS (2)
  1. CRESTOR [Suspect]
     Indication: BLOOD CHOLESTEROL INCREASED
     Dosage: 5 MG PO
     Route: 048
     Dates: start: 20041201
  2. ACIPHEX [Concomitant]

REACTIONS (3)
  - DIZZINESS [None]
  - EPISTAXIS [None]
  - NASAL DISCOMFORT [None]
